FAERS Safety Report 9195363 (Version 2)
Quarter: 2013Q2

REPORT INFORMATION
  Report Type: Spontaneous
  Country: CA (occurrence: CA)
  Receive Date: 20130328
  Receipt Date: 20130513
  Transmission Date: 20140414
  Serious: Yes (Other)
  Sender: FDA-Public Use
  Company Number: CA-AMGEN-CANSP2013020274

PATIENT
  Age: 67 Year
  Sex: Male

DRUGS (7)
  1. ENBREL [Suspect]
     Indication: RHEUMATOID ARTHRITIS
     Dosage: 50 UNK, QWK
     Route: 058
     Dates: start: 20121001
  2. LIPITOR [Concomitant]
     Dosage: UNK
  3. EZETROL [Concomitant]
     Dosage: UNK
  4. AVALIDE [Concomitant]
     Dosage: UNK
  5. FOLIC ACID [Concomitant]
     Dosage: UNK
  6. METHOTREXATE [Concomitant]
     Dosage: UNK
  7. ASPIRIN [Concomitant]
     Dosage: 81 UNK, UNK

REACTIONS (5)
  - Rheumatoid arthritis [Unknown]
  - Walking aid user [Unknown]
  - Pain [Unknown]
  - Fatigue [Unknown]
  - Anaemia [Unknown]
